FAERS Safety Report 9395137 (Version 1)
Quarter: 2013Q3

REPORT INFORMATION
  Report Type: Spontaneous
  Country: US (occurrence: US)
  Receive Date: 20130711
  Receipt Date: 20130711
  Transmission Date: 20140515
  Serious: No
  Sender: FDA-Public Use
  Company Number: US-B.I. PHARMACEUTICALS,INC./RIDGEFIELD-2013-BI-19853BP

PATIENT
  Age: 83 Year
  Sex: Male
  Weight: 73 kg

DRUGS (13)
  1. FLOMAX CAPSULES [Suspect]
     Indication: BENIGN PROSTATIC HYPERPLASIA
     Dosage: 0.4 MG
     Route: 048
  2. AGGRENOX [Suspect]
     Indication: CEREBROVASCULAR ACCIDENT PROPHYLAXIS
     Dosage: STRENGTH: 25 MG / 200 MG; DAILY DOSE: 50MG/ 400MG
     Route: 048
     Dates: start: 201305
  3. LISINOPRIL [Concomitant]
     Indication: HYPERTENSION
  4. VYTORIN [Concomitant]
     Indication: BLOOD CHOLESTEROL INCREASED
  5. VIT D [Concomitant]
  6. LEXAPRO [Concomitant]
     Indication: DEPRESSION
  7. LOSARTAN [Concomitant]
     Indication: HYPERTENSION
  8. AMLODIPINE [Concomitant]
     Indication: HYPERTENSION
  9. VIT C [Concomitant]
  10. TIMILOL [Concomitant]
     Indication: GLAUCOMA
  11. PEPCID [Concomitant]
     Indication: GASTROOESOPHAGEAL REFLUX DISEASE
  12. TRAVATAN [Concomitant]
  13. MULTIVITAMIN [Concomitant]

REACTIONS (1)
  - Haematochezia [Not Recovered/Not Resolved]
